FAERS Safety Report 7914462-6 (Version None)
Quarter: 2011Q4

REPORT INFORMATION
  Report Type: 
  Country: None (occurrence: None)
  Receive Date: 20111115
  Receipt Date: 20111110
  Transmission Date: 20120403
  Serious: Yes (Life-Threatening)
  Sender: FDA-Public Use
  Company Number: JP-SANOFI-AVENTIS-2011SA067350

PATIENT
  Age: 63 Year
  Sex: Male
  Weight: 54.05 kg

DRUGS (9)
  1. PLAVIX [Suspect]
     Indication: STENT PLACEMENT
     Route: 048
     Dates: start: 20110804, end: 20111006
  2. DIOVAN [Concomitant]
     Route: 048
     Dates: start: 20080717
  3. LANSOPRAZOLE [Concomitant]
     Dosage: DOSE 15 (UNITS UNSPECIFIED)
     Route: 048
     Dates: start: 20110804
  4. RENAGEL [Concomitant]
     Route: 048
     Dates: start: 20110318
  5. LEVOTHYROXINE SODIUM [Concomitant]
     Route: 048
     Dates: start: 20080806
  6. CALCIUM CARBONATE [Concomitant]
     Dosage: DOSE: 500 (UNITS UNSPECIFIED)
     Route: 048
     Dates: start: 20090318
  7. ASPIRIN [Concomitant]
     Route: 048
     Dates: start: 20110804
  8. LASIX [Concomitant]
     Route: 048
     Dates: start: 20080717
  9. ROCALTROL [Concomitant]
     Route: 048
     Dates: start: 20090618

REACTIONS (1)
  - THROMBOSIS IN DEVICE [None]
